FAERS Safety Report 10490747 (Version 1)
Quarter: 2014Q4

REPORT INFORMATION
  Report Type: Spontaneous
  Country: US (occurrence: US)
  Receive Date: 20141002
  Receipt Date: 20141002
  Transmission Date: 20150528
  Serious: No
  Sender: FDA-Public Use
  Company Number: US-GLAXOSMITHKLINE-A1041197A

PATIENT
  Sex: Female

DRUGS (4)
  1. NO CONCURRENT MEDICATION [Concomitant]
     Active Substance: UNSPECIFIED INGREDIENT
  2. ADVAIR HFA [Suspect]
     Active Substance: FLUTICASONE PROPIONATE\SALMETEROL XINAFOATE
     Indication: DYSPNOEA
     Dosage: 1PUFF PER DAY
     Route: 055
  3. RADIATION [Suspect]
     Active Substance: RADIATION THERAPY
     Indication: LUNG NEOPLASM MALIGNANT
  4. TARCEVA [Suspect]
     Active Substance: ERLOTINIB HYDROCHLORIDE
     Indication: LUNG NEOPLASM MALIGNANT

REACTIONS (7)
  - Underdose [Unknown]
  - Memory impairment [Unknown]
  - Off label use [Unknown]
  - Dyspnoea exertional [Unknown]
  - Cough [Unknown]
  - Lung disorder [Not Recovered/Not Resolved]
  - Fatigue [Unknown]
